FAERS Safety Report 10207094 (Version 1)
Quarter: 2014Q2

REPORT INFORMATION
  Report Type: Spontaneous
  Country: US (occurrence: None)
  Receive Date: 20140528
  Receipt Date: 20140528
  Transmission Date: 20141212
  Serious: No
  Sender: FDA-Public Use
  Company Number: None

PATIENT
  Age: 84 Year
  Sex: Female
  Weight: 54 kg

DRUGS (5)
  1. XARELTO [Suspect]
     Indication: THROMBOSIS PROPHYLAXIS
     Route: 048
     Dates: start: 20131211
  2. BYSTOLIC [Concomitant]
  3. PRILOSEC [Concomitant]
  4. VYTORIN [Concomitant]
  5. BAYB ASPIRIN [Concomitant]

REACTIONS (9)
  - Dizziness [None]
  - Fall [None]
  - Rib fracture [None]
  - Rectal haemorrhage [None]
  - Anaemia [None]
  - Myocardial infarction [None]
  - Pneumonia aspiration [None]
  - Hiatus hernia [None]
  - Haemorrhage [None]
